FAERS Safety Report 8100879-6 (Version None)
Quarter: 2012Q1

REPORT INFORMATION
  Report Type: 
  Country: None (occurrence: None)
  Receive Date: 20120129
  Receipt Date: 20110909
  Transmission Date: 20120608
  Serious: No
  Sender: FDA-Public Use
  Company Number: US-ABBOTT-11P-163-0852960-00

PATIENT
  Age: 26 Year
  Sex: Female

DRUGS (9)
  1. CYMBALTA [Concomitant]
     Indication: FIBROMYALGIA
  2. TIZANIDINE HCL [Concomitant]
     Indication: MUSCLE SPASMS
     Dosage: 1/2 DOSE EVERY 8 HOURS AS NEEDED
  3. HYOSCYAMINE [Concomitant]
     Indication: COLITIS
  4. MIRALAX [Concomitant]
     Indication: CONSTIPATION
  5. HUMIRA [Suspect]
     Indication: CROHN'S DISEASE
     Dates: start: 20110730
  6. HYDROCODONE BITARTRATE [Concomitant]
     Indication: PAIN
  7. CORTICOTROPIN [Concomitant]
     Indication: COLITIS
  8. OMEPRAZOLE [Concomitant]
     Indication: GASTRITIS
  9. PREDNISONE TAB [Concomitant]
     Indication: CROHN'S DISEASE
     Dosage: 2 TABLETS IN AM

REACTIONS (1)
  - RASH [None]
